FAERS Safety Report 4878553-9 (Version None)
Quarter: 2006Q1

REPORT INFORMATION
  Report Type: 
  Country: None (occurrence: None)
  Receive Date: 20060110
  Receipt Date: 20060103
  Transmission Date: 20060701
  Serious: Yes (Death)
  Sender: FDA-Public Use
  Company Number: USA-2006-0022095

PATIENT
  Age: 42 Year
  Sex: Male
  Weight: 73.9 kg

DRUGS (4)
  1. OXYCODONE HCL [Suspect]
     Indication: DRUG USE FOR UNKNOWN INDICATION
  2. DIPHENYHYDRAMINE (DIPHENHYDRAMINE) [Suspect]
     Indication: DRUG USE FOR UNKNOWN INDICATION
  3. ETHANOL (ETHANOL) [Suspect]
     Indication: DRUG USE FOR UNKNOWN INDICATION
  4. ACETAMINOPHEN [Suspect]
     Indication: DRUG USE FOR UNKNOWN INDICATION

REACTIONS (14)
  - ABDOMINAL INFECTION [None]
  - ACCIDENTAL DEATH [None]
  - ALCOHOLISM [None]
  - ARTERIOSCLEROSIS [None]
  - ARTERIOSCLEROSIS CORONARY ARTERY [None]
  - CHRONIC OBSTRUCTIVE PULMONARY DISEASE [None]
  - DRUG TOXICITY [None]
  - EMPHYSEMA [None]
  - FATIGUE [None]
  - FEELING HOT [None]
  - HEPATIC STEATOSIS [None]
  - INJURY [None]
  - INTESTINAL PERFORATION [None]
  - MULTIPLE DRUG OVERDOSE ACCIDENTAL [None]
